FAERS Safety Report 14926778 (Version 5)
Quarter: 2022Q2

REPORT INFORMATION
  Report Type: Spontaneous
  Country: JP (occurrence: JP)
  Receive Date: 20180523
  Receipt Date: 20220630
  Transmission Date: 20220721
  Serious: Yes (Death, Life-Threatening, Hospitalization, Other)
  Sender: FDA-Public Use
  Company Number: JP-BRISTOL-MYERS SQUIBB COMPANY-BMS-2018-014621

PATIENT
  Age: 81 Year
  Sex: Female
  Weight: 30 kg

DRUGS (1)
  1. OPDIVO [Suspect]
     Active Substance: NIVOLUMAB
     Indication: Head and neck cancer
     Dosage: 3 MG/KG (240 MG)/DAY (2017/10/03, 10/17, 10/31, 11/14, 11/29, 12/12, 2018/01/05, 01/23)
     Route: 041
     Dates: start: 20171003, end: 20180123

REACTIONS (7)
  - Adrenal insufficiency [Unknown]
  - Granulocyte-colony stimulating factor level increased [Unknown]
  - Blood glucose increased [Unknown]
  - White blood cell count increased [Unknown]
  - Blood thyroid stimulating hormone decreased [Unknown]
  - Hypopituitarism [Fatal]
  - Malignant neoplasm progression [Fatal]

NARRATIVE: CASE EVENT DATE: 20171201
